FAERS Safety Report 5166812-4 (Version None)
Quarter: 2006Q4

REPORT INFORMATION
  Report Type: 
  Country: None (occurrence: None)
  Receive Date: 20061129
  Receipt Date: 20061115
  Transmission Date: 20070319
  Serious: Yes (Other)
  Sender: FDA-Public Use
  Company Number: 2006SP006450

PATIENT
  Age: 63 Year
  Sex: Female

DRUGS (3)
  1. INTRON A [Suspect]
     Indication: HEPATITIS C
     Dosage: 3 MIU; TIW; IM
     Route: 030
     Dates: start: 20060202
  2. REBETOL [Suspect]
     Indication: HEPATITIS C
     Dosage: SEE IMAGE
     Route: 048
     Dates: start: 20050202, end: 20050211
  3. REBETOL [Suspect]
     Indication: HEPATITIS C
     Dosage: SEE IMAGE
     Route: 048
     Dates: start: 20050215, end: 20060224

REACTIONS (5)
  - BLOOD PRESSURE DECREASED [None]
  - CHOLANGITIS [None]
  - DECREASED APPETITE [None]
  - MALAISE [None]
  - SEPTIC SHOCK [None]
